FAERS Safety Report 16560284 (Version 2)
Quarter: 2019Q3

REPORT INFORMATION
  Report Type: Spontaneous
  Country: US (occurrence: US)
  Receive Date: 20190711
  Receipt Date: 20190724
  Transmission Date: 20191004
  Serious: No
  Sender: FDA-Public Use
  Company Number: US-SA-2019SA181850

PATIENT
  Age: 64 Year
  Sex: Male

DRUGS (26)
  1. FLONASE ALLERGY RELIEF [Concomitant]
     Active Substance: FLUTICASONE PROPIONATE
  2. CROMOLYN SODIUM. [Concomitant]
     Active Substance: CROMOLYN SODIUM
  3. EUCRISA [Concomitant]
     Active Substance: CRISABOROLE
  4. DOXAZOSIN MESYLATE. [Concomitant]
     Active Substance: DOXAZOSIN MESYLATE
  5. HUMALOG [Concomitant]
     Active Substance: INSULIN LISPRO
  6. ASPIRIN (E.C.) [Concomitant]
     Active Substance: ASPIRIN
  7. OZEMPIC [Concomitant]
     Active Substance: SEMAGLUTIDE
  8. DUPIXENT [Suspect]
     Active Substance: DUPILUMAB
     Indication: DERMATITIS ATOPIC
     Dosage: 300 MG, QOW
     Route: 058
     Dates: start: 20190530
  9. AQUANIL HC [Concomitant]
     Active Substance: HYDROCORTISONE
  10. IRON [Concomitant]
     Active Substance: IRON
  11. MULTIVITAMINS [VITAMINS NOS] [Concomitant]
     Active Substance: VITAMINS
  12. KETOCONAZOLE. [Concomitant]
     Active Substance: KETOCONAZOLE
  13. VITAMIN D3 [Concomitant]
     Active Substance: CHOLECALCIFEROL
  14. MONTELUKAST SODIUM. [Concomitant]
     Active Substance: MONTELUKAST SODIUM
  15. METOPROLOL TARTRATE. [Concomitant]
     Active Substance: METOPROLOL TARTRATE
  16. SERTRALINE HCL [Concomitant]
     Active Substance: SERTRALINE HYDROCHLORIDE
  17. MUPIROCIN. [Concomitant]
     Active Substance: MUPIROCIN
  18. DESLORATADINE. [Concomitant]
     Active Substance: DESLORATADINE
  19. CALAMINE [Concomitant]
     Active Substance: CALAMINE\FERRIC OXIDE RED\ZINC OXIDE
  20. MG217 MEDICATED COAL TAR [Concomitant]
     Indication: PSORIASIS
  21. VERAPAMIL [Concomitant]
     Active Substance: VERAPAMIL HYDROCHLORIDE
  22. TOUJEO MAX SOLOSTAR [Concomitant]
  23. ATORVASTATIN CALCIUM. [Concomitant]
     Active Substance: ATORVASTATIN CALCIUM
  24. METFORMIN HCL PFIZER [Concomitant]
     Active Substance: METFORMIN HYDROCHLORIDE
  25. LIDOCAINE HYDROCORTISONE [Concomitant]
  26. SARNA SENSITIVE [Concomitant]

REACTIONS (4)
  - Gait disturbance [Recovering/Resolving]
  - Arthralgia [Recovering/Resolving]
  - Malaise [Unknown]
  - Myalgia [Recovering/Resolving]
